FAERS Safety Report 7088184-0 (Version None)
Quarter: 2010Q4

REPORT INFORMATION
  Report Type: 
  Country: None (occurrence: None)
  Receive Date: 20101108
  Receipt Date: 20101027
  Transmission Date: 20110411
  Serious: Yes (Other)
  Sender: FDA-Public Use
  Company Number: CH-JNJFOC-20101100323

PATIENT
  Age: 42 Year
  Sex: Male

DRUGS (8)
  1. FENTANYL CITRATE [Suspect]
     Indication: ILL-DEFINED DISORDER
     Route: 065
  2. ERYTHROMYCIN [Suspect]
     Indication: ILL-DEFINED DISORDER
     Route: 065
  3. MIDAZOLAM [Interacting]
     Indication: ILL-DEFINED DISORDER
     Route: 065
  4. MORPHINE [Suspect]
     Indication: ILL-DEFINED DISORDER
     Route: 065
  5. PROPOFOL [Suspect]
     Indication: ANAESTHESIA
     Route: 065
  6. HYPNOTICS [Suspect]
     Indication: ILL-DEFINED DISORDER
     Route: 065
  7. ANALGESIC UNSPECIFIED [Suspect]
     Indication: ILL-DEFINED DISORDER
     Route: 065
  8. ANAESTHETIC [Suspect]
     Indication: ILL-DEFINED DISORDER
     Route: 065

REACTIONS (5)
  - COMA [None]
  - DRUG HALF-LIFE INCREASED [None]
  - DRUG INTERACTION [None]
  - HEPATIC FAILURE [None]
  - RENAL FAILURE [None]
